FAERS Safety Report 8409674-1 (Version None)
Quarter: 2012Q2

REPORT INFORMATION
  Report Type: 
  Country: None (occurrence: None)
  Receive Date: 20120323
  Receipt Date: 20110804
  Transmission Date: 20120825
  Serious: Yes (Other)
  Sender: FDA-Public Use
  Company Number: 163-21880-11020898

PATIENT
  Age: 66 Year
  Sex: Male
  Weight: 101.2 kg

DRUGS (3)
  1. REVLIMID [Suspect]
     Indication: MULTIPLE MYELOMA
     Dosage: 10 MG, 1 IN 1 D, PO
     Route: 048
     Dates: start: 20100708
  2. REVLIMID [Suspect]
     Indication: MULTIPLE MYELOMA
     Dosage: 10 MG, 1 IN 1 D, PO
     Route: 048
     Dates: start: 20091207, end: 20100402
  3. REVLIMID [Suspect]

REACTIONS (4)
  - STEVENS-JOHNSON SYNDROME [None]
  - BLOOD PRESSURE DECREASED [None]
  - DRY SKIN [None]
  - SYNCOPE [None]
